FAERS Safety Report 15065936 (Version 1)
Quarter: 2018Q2

REPORT INFORMATION
  Report Type: Spontaneous
  Country: DE (occurrence: DE)
  Receive Date: 20180626
  Receipt Date: 20180626
  Transmission Date: 20180711
  Serious: Yes (Other)
  Sender: FDA-Public Use
  Company Number: DE-MERCK KGAA-2049952

PATIENT
  Age: 64 Year
  Sex: Female

DRUGS (3)
  1. EUTHYROX [Suspect]
     Active Substance: LEVOTHYROXINE SODIUM
     Dates: start: 2018
  2. NOVOTHYROX [Suspect]
     Active Substance: LEVOTHYROXINE SODIUM
     Indication: AUTOIMMUNE THYROIDITIS
     Dates: start: 2016
  3. L-THYROXIN [Suspect]
     Active Substance: LEVOTHYROXINE SODIUM

REACTIONS (4)
  - Fluid retention [None]
  - Hypometabolism [None]
  - Lymphoedema [None]
  - Abdominal discomfort [None]

NARRATIVE: CASE EVENT DATE: 2018
